FAERS Safety Report 15239473 (Version 1)
Quarter: 2018Q3

REPORT INFORMATION
  Report Type: Spontaneous
  Country: US (occurrence: US)
  Receive Date: 20180710
  Receipt Date: 20180710
  Transmission Date: 20181010
  Serious: Yes (Life-Threatening, Disabling)
  Sender: FDA-Public Use
  Company Number: None

PATIENT
  Age: 88 Year
  Sex: Male
  Weight: 74.25 kg

DRUGS (11)
  1. CLOPIDOGREL [Concomitant]
     Active Substance: CLOPIDOGREL BISULFATE
  2. ELIQUIS [Concomitant]
     Active Substance: APIXABAN
  3. LEVOTHYROXINE. [Concomitant]
     Active Substance: LEVOTHYROXINE
  4. TYLENOL [Concomitant]
     Active Substance: ACETAMINOPHEN
  5. AMIODARONE HCL [Suspect]
     Active Substance: AMIODARONE HYDROCHLORIDE
     Indication: ARRHYTHMIA
     Dosage: ?          QUANTITY:1 DF DOSAGE FORM;?
     Route: 048
     Dates: start: 20170901, end: 20180401
  6. FUROSEMIDE. [Concomitant]
     Active Substance: FUROSEMIDE
  7. PRESERVISION [Concomitant]
     Active Substance: MINERALS\VITAMINS
  8. ALLOPURINOL. [Concomitant]
     Active Substance: ALLOPURINOL
  9. AMLODIPINE [Concomitant]
     Active Substance: AMLODIPINE BESYLATE
  10. BILBERRY [Concomitant]
     Active Substance: BILBERRY
  11. ATORVASTATIN [Concomitant]
     Active Substance: ATORVASTATIN

REACTIONS (8)
  - Asthenia [None]
  - Heart rate decreased [None]
  - Wrong dose [None]
  - Drug prescribing error [None]
  - Balance disorder [None]
  - Blindness [None]
  - Thyroid disorder [None]
  - Fall [None]

NARRATIVE: CASE EVENT DATE: 20180401
